FAERS Safety Report 8265890-3 (Version None)
Quarter: 2012Q2

REPORT INFORMATION
  Report Type: 
  Country: None (occurrence: None)
  Receive Date: 20120406
  Receipt Date: 20120329
  Transmission Date: 20120825
  Serious: Yes (Hospitalization)
  Sender: FDA-Public Use
  Company Number: JP-GLAXOSMITHKLINE-B0792724A

PATIENT
  Sex: Female
  Weight: 58 kg

DRUGS (7)
  1. TYKERB [Suspect]
     Indication: BREAST CANCER
     Dosage: 1250MG PER DAY
     Route: 048
     Dates: start: 20090721, end: 20091216
  2. MOTILIUM [Concomitant]
     Indication: GASTRITIS
     Route: 048
  3. URSO 250 [Concomitant]
     Indication: HEPATIC FUNCTION ABNORMAL
     Route: 048
  4. XELODA [Suspect]
     Dosage: 3000MG PER DAY
     Dates: start: 20090721, end: 20091216
  5. PYDOXAL [Concomitant]
     Indication: NEUROPATHY PERIPHERAL
     Route: 048
  6. FAMOTIDINE [Concomitant]
     Indication: GASTRITIS
     Route: 048
     Dates: end: 20090730
  7. RABEPRAZOLE SODIUM [Concomitant]
     Indication: GASTRITIS
     Route: 048
     Dates: start: 20090730

REACTIONS (1)
  - CALCULUS URETERIC [None]
